FAERS Safety Report 16498188 (Version 1)
Quarter: 2019Q2

REPORT INFORMATION
  Report Type: Spontaneous
  Country: PT (occurrence: PT)
  Receive Date: 20190628
  Receipt Date: 20190628
  Transmission Date: 20190711
  Serious: Yes (Other)
  Sender: FDA-Public Use
  Company Number: IND-PT-009507513-1906PRT010109

PATIENT
  Age: 48 Year
  Sex: Female

DRUGS (1)
  1. TUROX [Suspect]
     Active Substance: ETORICOXIB
     Dosage: 60 MILLIGRAM, Q12H
     Route: 048
     Dates: start: 20190520

REACTIONS (6)
  - Rash [Recovering/Resolving]
  - Erythema [Recovering/Resolving]
  - Rash pruritic [Recovering/Resolving]
  - Skin irritation [Recovering/Resolving]
  - Urticaria [Recovering/Resolving]
  - Rash vesicular [Recovering/Resolving]

NARRATIVE: CASE EVENT DATE: 201905
